FAERS Safety Report 10812016 (Version 1)
Quarter: 2015Q1

REPORT INFORMATION
  Report Type: Spontaneous
  Country: US (occurrence: None)
  Receive Date: 20150213
  Receipt Date: 20150213
  Transmission Date: 20150721
  Serious: No
  Sender: FDA-Public Use
  Company Number: None

PATIENT
  Age: 7 Year
  Sex: Female
  Weight: 22.68 kg

DRUGS (1)
  1. AMOXICILLIN. [Suspect]
     Active Substance: AMOXICILLIN
     Indication: LYMPH GLAND INFECTION
     Dosage: 1 TSP TWICE DAILY TAKEN BY MOUTH
     Route: 048
     Dates: start: 20150115, end: 20150124

REACTIONS (3)
  - Joint swelling [None]
  - Pruritus [None]
  - Arthralgia [None]

NARRATIVE: CASE EVENT DATE: 20150124
